FAERS Safety Report 4407173-5 (Version None)
Quarter: 2004Q3

REPORT INFORMATION
  Report Type: 
  Country: None (occurrence: None)
  Receive Date: 20040723
  Receipt Date: 20040723
  Transmission Date: 20050211
  Serious: Yes (Other)
  Sender: FDA-Public Use
  Company Number: None

PATIENT
  Age: 82 Year
  Sex: Male
  Weight: 97.1 kg

DRUGS (8)
  1. LISINOPRIL [Suspect]
  2. DOCUSATE NA [Concomitant]
  3. SYNTHROID [Concomitant]
  4. SPIRONOLACTONE [Concomitant]
  5. FLUOXETINE HCL [Concomitant]
  6. COUMADIN [Concomitant]
  7. GUAIFENESIN [Concomitant]
  8. ACETAMINOPHEN [Concomitant]

REACTIONS (1)
  - COUGH [None]
